FAERS Safety Report 9572243 (Version 2)
Quarter: 2013Q4

REPORT INFORMATION
  Report Type: Spontaneous
  Country: US (occurrence: US)
  Receive Date: 20131001
  Receipt Date: 20131001
  Transmission Date: 20140711
  Serious: No
  Sender: FDA-Public Use
  Company Number: US-BIOGENIDEC-2013BI068340

PATIENT
  Age: 54 Year
  Sex: Female

DRUGS (2)
  1. TECFIDERA [Suspect]
     Indication: RELAPSING-REMITTING MULTIPLE SCLEROSIS
     Route: 048
     Dates: start: 20130708, end: 20130714
  2. TECFIDERA [Suspect]
     Indication: RELAPSING-REMITTING MULTIPLE SCLEROSIS
     Route: 048
     Dates: start: 20130715

REACTIONS (10)
  - Anxiety [Not Recovered/Not Resolved]
  - Pain [Not Recovered/Not Resolved]
  - Mobility decreased [Not Recovered/Not Resolved]
  - Chest pain [Recovered/Resolved]
  - Paraesthesia [Not Recovered/Not Resolved]
  - Chills [Recovered/Resolved]
  - Bladder disorder [Unknown]
  - Feeling cold [Unknown]
  - Multiple sclerosis relapse [Not Recovered/Not Resolved]
  - Gastrointestinal disorder [Unknown]
